FAERS Safety Report 23885824 (Version 1)
Quarter: 2024Q2

REPORT INFORMATION
  Report Type: Spontaneous
  Country: CZ (occurrence: CZ)
  Receive Date: 20240522
  Receipt Date: 20240522
  Transmission Date: 20240717
  Serious: Yes (Death)
  Sender: FDA-Public Use
  Company Number: CZ-LA JOLLA PHARMA, LLC-2024-INNO-CZ000030

PATIENT

DRUGS (6)
  1. GIAPREZA [Suspect]
     Active Substance: ANGIOTENSIN II
     Indication: Hypotension
     Dosage: 20 NG/KG/MIN
     Route: 042
     Dates: start: 20240430
  2. GLUCAGON [Concomitant]
     Active Substance: GLUCAGON\GLUCAGON HYDROCHLORIDE\WATER
     Indication: Product used for unknown indication
     Dosage: UNK
     Route: 065
  3. NOREPINEPHRINE [Concomitant]
     Active Substance: NOREPINEPHRINE\NOREPINEPHRINE BITARTRATE
     Indication: Product used for unknown indication
     Dosage: 6 UG/KG/MIN
     Route: 065
  4. NOREPINEPHRINE [Concomitant]
     Active Substance: NOREPINEPHRINE\NOREPINEPHRINE BITARTRATE
     Dosage: 3 UG/KG/MIN (REDUCED AFTER ANGIOTENSIN II)
     Route: 065
  5. EPINEPHRINE [Concomitant]
     Active Substance: EPINEPHRINE
     Indication: Product used for unknown indication
     Dosage: 0.2 UG/KG/MIN
     Route: 065
  6. ARGIPRESSIN [Concomitant]
     Active Substance: ARGIPRESSIN
     Indication: Product used for unknown indication
     Dosage: 0.08-0.013 IU/MIN
     Route: 065

REACTIONS (1)
  - Toxicity to various agents [Fatal]
